FAERS Safety Report 7915779-1 (Version None)
Quarter: 2011Q4

REPORT INFORMATION
  Report Type: 
  Country: None (occurrence: None)
  Receive Date: 20111115
  Receipt Date: 20111111
  Transmission Date: 20120403
  Serious: Yes (Other)
  Sender: FDA-Public Use
  Company Number: US-TEVA-308999USA

PATIENT
  Sex: Female

DRUGS (3)
  1. DOXYCYCLINE [Suspect]
  2. PREDNISONE [Concomitant]
  3. PROAIR HFA [Suspect]
     Route: 055
     Dates: start: 20111101

REACTIONS (3)
  - LIP SWELLING [None]
  - OEDEMA MOUTH [None]
  - SWOLLEN TONGUE [None]
